FAERS Safety Report 4480437-5 (Version None)
Quarter: 2004Q4

REPORT INFORMATION
  Report Type: 
  Country: None (occurrence: None)
  Receive Date: 20041018
  Receipt Date: 20041008
  Transmission Date: 20050328
  Serious: Yes (Hospitalization)
  Sender: FDA-Public Use
  Company Number: 2004RL000113

PATIENT
  Sex: Male

DRUGS (3)
  1. RYTHMOL [Suspect]
     Indication: ATRIAL FIBRILLATION
     Dosage: 325 MG;BID;PO
     Route: 048
  2. BETA BLOCKER [Suspect]
     Dates: end: 20041001
  3. DIGOXIN [Suspect]
     Dates: end: 20041001

REACTIONS (2)
  - ATRIAL FIBRILLATION [None]
  - BRADYCARDIA [None]
